FAERS Safety Report 9461653 (Version 1)
Quarter: 2013Q3

REPORT INFORMATION
  Report Type: Spontaneous
  Country: AU (occurrence: AU)
  Receive Date: 20130816
  Receipt Date: 20130816
  Transmission Date: 20140515
  Serious: Yes (Death, Other)
  Sender: FDA-Public Use
  Company Number: AU-AMGEN-USASP2012033026

PATIENT
  Age: 45 Year
  Sex: Male

DRUGS (2)
  1. CINACALCET HCL [Suspect]
     Indication: HYPERCALCAEMIA
     Dosage: 90 MG, Q6H
     Route: 065
  2. XGEVA [Suspect]
     Indication: HYPERCALCAEMIA OF MALIGNANCY
     Dosage: 120 MG, UNK
     Route: 058

REACTIONS (10)
  - Metastasis [Fatal]
  - Disease progression [Unknown]
  - Pleural effusion [Unknown]
  - Drug ineffective [Unknown]
  - Fatigue [Unknown]
  - Polydipsia [Unknown]
  - Renal disorder [Unknown]
  - General physical health deterioration [Unknown]
  - Weight decreased [Unknown]
  - Decreased appetite [Unknown]
